FAERS Safety Report 9357590 (Version 1)
Quarter: 2013Q2

REPORT INFORMATION
  Report Type: Spontaneous
  Country: IE (occurrence: None)
  Receive Date: 20130617
  Receipt Date: 20130617
  Transmission Date: 20140414
  Serious: Yes (Other)
  Sender: FDA-Public Use
  Company Number: 1741800

PATIENT
  Age: 4 Year
  Sex: Female
  Weight: 13.6 kg

DRUGS (2)
  1. VINCRISTINE SULFATE [Suspect]
     Indication: OPTIC GLIOMA
     Route: 042
     Dates: start: 20130514, end: 20130514
  2. CARBOPLATIN [Suspect]
     Indication: OPTIC GLIOMA
     Route: 042
     Dates: start: 20130514, end: 20130514

REACTIONS (3)
  - Pruritus generalised [None]
  - Erythema [None]
  - Vomiting [None]
